FAERS Safety Report 8848736 (Version 1)
Quarter: 2012Q4

REPORT INFORMATION
  Report Type: Spontaneous
  Country: US (occurrence: None)
  Receive Date: 20121017
  Receipt Date: 20121017
  Transmission Date: 20130627
  Serious: No
  Sender: FDA-Public Use
  Company Number: None

PATIENT
  Age: 85 Year
  Sex: Male

DRUGS (3)
  1. IRINOTECAN [Suspect]
     Indication: MALIGNANT NEOPLASM OF ESOPHAGUS
     Dosage: 110MG WEEKLY X 2 WKS IV
     Route: 042
     Dates: start: 20120918, end: 20120924
  2. IRINOTECAN [Suspect]
     Indication: MALIGNANT NEOPLASM OF ESOPHAGUS
  3. CISPLATIN [Suspect]
     Dosage: 50MG WEEKLY X 2 WKS IV
     Route: 042
     Dates: start: 20120918, end: 20120924

REACTIONS (1)
  - Death [None]
